FAERS Safety Report 5678414-1 (Version None)
Quarter: 2008Q1

REPORT INFORMATION
  Report Type: 
  Country: None (occurrence: None)
  Receive Date: 20080321
  Receipt Date: 20080313
  Transmission Date: 20080703
  Serious: Yes (Hospitalization)
  Sender: FDA-Public Use
  Company Number: E2090-00405-SPO-US

PATIENT
  Age: 39 Year
  Sex: Female

DRUGS (4)
  1. ZONEGRAN [Suspect]
     Indication: MYOCLONIC EPILEPSY
     Dosage: 400 MG, 2 IN 1 D, ORAL, 2YEARS AGO
     Route: 048
     Dates: end: 20080201
  2. DEPAKOTE ER [Concomitant]
  3. SERTRALINE HYDROCHLORIDE [Concomitant]
  4. FOLIC ACID [Concomitant]

REACTIONS (5)
  - ANOREXIA [None]
  - DRUG EXPOSURE DURING PREGNANCY [None]
  - FOETAL GROWTH RETARDATION [None]
  - INDUCED LABOUR [None]
  - PREGNANCY [None]
